FAERS Safety Report 21828924 (Version 1)
Quarter: 2023Q1

REPORT INFORMATION
  Report Type: Report from Study
  Country: US (occurrence: US)
  Receive Date: 20230106
  Receipt Date: 20230106
  Transmission Date: 20230417
  Serious: No
  Sender: FDA-Public Use
  Company Number: US-ABBVIE-4230364

PATIENT
  Age: 71 Year
  Sex: Female

DRUGS (4)
  1. HUMIRA [Suspect]
     Active Substance: ADALIMUMAB
     Indication: Rheumatoid arthritis
     Route: 058
  2. Moderna [Concomitant]
     Indication: COVID-19 immunisation
     Dosage: 1ST DOSE (ONE IN ONCE)
     Route: 030
     Dates: start: 20210307, end: 20210307
  3. Moderna [Concomitant]
     Indication: COVID-19 immunisation
     Dosage: 2ND DOSE (ONE IN ONCE)
     Route: 030
     Dates: start: 20210401, end: 20210401
  4. Moderna [Concomitant]
     Indication: COVID-19 immunisation
     Dosage: BOOSTER DOSE (ONE IN ONCE)
     Route: 030
     Dates: start: 20220602, end: 20220602

REACTIONS (4)
  - Arthralgia [Recovering/Resolving]
  - Pain [Recovering/Resolving]
  - Sleep disorder [Recovering/Resolving]
  - Therapeutic response shortened [Recovering/Resolving]

NARRATIVE: CASE EVENT DATE: 20221001
